FAERS Safety Report 19352428 (Version 13)
Quarter: 2022Q4

REPORT INFORMATION
  Report Type: Report from Study
  Country: CN (occurrence: CN)
  Receive Date: 20210531
  Receipt Date: 20221007
  Transmission Date: 20230113
  Serious: Yes (Hospitalization, Other)
  Sender: FDA-Public Use
  Company Number: CN-TAKEDA-2021TUS033876

PATIENT
  Age: 48 Year
  Sex: Male
  Weight: 60 kg

DRUGS (4)
  1. IXAZOMIB [Suspect]
     Active Substance: IXAZOMIB
     Indication: Plasma cell myeloma
     Dosage: 4 MILLIGRAM, 1/WEEK
     Route: 048
     Dates: start: 20210506
  2. DEXAMETHASONE [Suspect]
     Active Substance: DEXAMETHASONE
     Indication: Plasma cell myeloma
     Dosage: 0.75 MILLIGRAM
     Route: 048
     Dates: start: 20210506
  3. LIDOCAINE HYDROCHLORIDE [Concomitant]
     Active Substance: LIDOCAINE HYDROCHLORIDE
     Indication: Local anaesthesia
     Dosage: 5 MILLILITER, QD
     Route: 061
     Dates: start: 20210426, end: 20210426
  4. OMEPRAZOLE [Concomitant]
     Active Substance: OMEPRAZOLE
     Indication: Prophylaxis
     Dosage: 20 MILLIGRAM, BID
     Route: 048
     Dates: start: 20210506

REACTIONS (11)
  - Dysbiosis [Recovered/Resolved]
  - Hepatic failure [Recovering/Resolving]
  - Retroperitoneal neoplasm [Recovering/Resolving]
  - Febrile infection [Recovered/Resolved]
  - Pneumonia [Not Recovered/Not Resolved]
  - Upper respiratory tract infection [Not Recovered/Not Resolved]
  - White blood cell count decreased [Not Recovered/Not Resolved]
  - Herpes zoster [Recovering/Resolving]
  - Gastrointestinal infection [Recovered/Resolved]
  - Platelet count decreased [Recovered/Resolved]
  - Off label use [Unknown]

NARRATIVE: CASE EVENT DATE: 20210509
